FAERS Safety Report 4892533-9 (Version None)
Quarter: 2006Q1

REPORT INFORMATION
  Report Type: 
  Country: None (occurrence: None)
  Receive Date: 20060126
  Receipt Date: 20060116
  Transmission Date: 20060701
  Serious: Yes (Other)
  Sender: FDA-Public Use
  Company Number: PHEH2006US01026

PATIENT
  Sex: Female

DRUGS (1)
  1. TEGRETOL [Suspect]
     Dates: end: 20040501

REACTIONS (1)
  - HIP FRACTURE [None]
